FAERS Safety Report 6423110-6 (Version None)
Quarter: 2009Q4

REPORT INFORMATION
  Report Type: 
  Country: None (occurrence: None)
  Receive Date: 20091102
  Receipt Date: 20091021
  Transmission Date: 20100525
  Serious: Yes (Other)
  Sender: FDA-Public Use
  Company Number: DE-ELI_LILLY_AND_COMPANY-DE200910005330

PATIENT
  Sex: Male

DRUGS (1)
  1. ARICLAIM [Suspect]
     Dosage: 30 MG, UNK
     Route: 048

REACTIONS (2)
  - NAUSEA [None]
  - PROSTATE CANCER [None]
